FAERS Safety Report 11086865 (Version 1)
Quarter: 2015Q2

REPORT INFORMATION
  Report Type: Spontaneous
  Country: US (occurrence: US)
  Receive Date: 20150504
  Receipt Date: 20150504
  Transmission Date: 20150821
  Serious: Yes (Hospitalization, Other)
  Sender: FDA-Public Use
  Company Number: US-BAYER-2015-182653

PATIENT
  Age: 73 Year
  Sex: Female

DRUGS (2)
  1. ACETYLSALICYLIC ACID({=100 MG) [Suspect]
     Active Substance: ASPIRIN
  2. RIVAROXABAN [Suspect]
     Active Substance: RIVAROXABAN

REACTIONS (2)
  - Gastrointestinal haemorrhage [None]
  - Coagulopathy [None]
